FAERS Safety Report 8044646-0 (Version None)
Quarter: 2012Q1

REPORT INFORMATION
  Report Type: 
  Country: None (occurrence: None)
  Receive Date: 20120113
  Receipt Date: 20120106
  Transmission Date: 20120608
  Serious: Yes (Hospitalization)
  Sender: FDA-Public Use
  Company Number: US-BAYER-2011-073188

PATIENT
  Age: 36 Year
  Sex: Female
  Weight: 74.83 kg

DRUGS (14)
  1. YASMIN [Suspect]
     Indication: CONTRACEPTION
     Dosage: UNK
     Dates: start: 20020101, end: 20090101
  2. MELOXICAM [Concomitant]
     Indication: RHEUMATOID ARTHRITIS
     Dosage: UNK
     Dates: start: 20080101, end: 20090101
  3. METHOTREXATE [Concomitant]
     Indication: RHEUMATOID ARTHRITIS
     Dosage: UNK
     Dates: start: 20080101
  4. NITROFURANTOIN [Concomitant]
     Dosage: 100 MG, UNK
     Dates: start: 20090921
  5. SYNTHROID [Concomitant]
     Dosage: UNK
     Dates: start: 20080101
  6. TAMIFLU [Concomitant]
  7. DROSPIRENONE AND ETHINYL ESTRADIOL [Suspect]
     Dosage: UNK
     Dates: start: 20020101, end: 20090101
  8. HUMIRA [Concomitant]
     Indication: RHEUMATOID ARTHRITIS
     Dosage: UNK
     Dates: start: 20090101
  9. JANUVIA [Concomitant]
     Indication: DIABETES MELLITUS
     Dosage: UNK
     Dates: start: 20090101
  10. NSAID'S [Concomitant]
  11. YAZ [Suspect]
     Indication: CONTRACEPTION
     Dosage: UNK
     Dates: start: 20020101, end: 20090101
  12. CYCLOBENZAPRINE [Concomitant]
     Dosage: UNK
     Dates: start: 20091001
  13. TRAMADOL HCL [Concomitant]
     Dosage: 50 MG, UNK
     Dates: start: 20091014
  14. FOLIC ACID [Concomitant]
     Indication: RHEUMATOID ARTHRITIS
     Dosage: UNK
     Dates: start: 20080101

REACTIONS (2)
  - PELVIC VENOUS THROMBOSIS [None]
  - PAIN [None]
